FAERS Safety Report 17652502 (Version 1)
Quarter: 2020Q2

REPORT INFORMATION
  Report Type: Spontaneous
  Country: US (occurrence: US)
  Receive Date: 20200409
  Receipt Date: 20200409
  Transmission Date: 20200713
  Serious: Yes (Other)
  Sender: FDA-Public Use
  Company Number: US-INDIVIOR EUROPE LIMITED-INDV-124333-2020

PATIENT
  Age: 43 Year
  Sex: Male

DRUGS (4)
  1. BUPRENORPHINE. [Suspect]
     Active Substance: BUPRENORPHINE
     Indication: ARTHRALGIA
     Dosage: 12 MILLIGRAM (8MG DAILY AND 4MG NIGHTLY)
     Route: 065
  2. BUPRENORPHINE. [Suspect]
     Active Substance: BUPRENORPHINE
     Indication: MAJOR DEPRESSION
  3. BUPRENORPHINE. [Suspect]
     Active Substance: BUPRENORPHINE
     Indication: SUICIDAL IDEATION
  4. BUPRENORPHINE. [Suspect]
     Active Substance: BUPRENORPHINE
     Indication: DRUG USE DISORDER

REACTIONS (6)
  - Confusional state [Unknown]
  - Tachycardia [Unknown]
  - Hallucination, auditory [Recovered/Resolved]
  - Insomnia [Unknown]
  - Inappropriate schedule of product administration [Recovered/Resolved]
  - Pre-existing condition improved [Recovered/Resolved]
